FAERS Safety Report 24110398 (Version 1)
Quarter: 2024Q3

REPORT INFORMATION
  Report Type: Spontaneous
  Country: US (occurrence: None)
  Receive Date: 20240717
  Receipt Date: 20240717
  Transmission Date: 20241017
  Serious: Yes (Other)
  Sender: Public
  Company Number: None

PATIENT
  Age: 73 Year
  Sex: Male
  Weight: 78 kg

DRUGS (1)
  1. ETOPOSIDE [Suspect]
     Active Substance: ETOPOSIDE
     Indication: Lung neoplasm malignant

REACTIONS (5)
  - Chest discomfort [None]
  - Dyspnoea [None]
  - Erythema [None]
  - Cold sweat [None]
  - Blood pressure increased [None]

NARRATIVE: CASE EVENT DATE: 20240716
